FAERS Safety Report 20847947 (Version 2)
Quarter: 2022Q3

REPORT INFORMATION
  Report Type: Spontaneous
  Country: US (occurrence: US)
  Receive Date: 20220519
  Receipt Date: 20220718
  Transmission Date: 20221027
  Serious: No
  Sender: FDA-Public Use
  Company Number: US-TEVA-2022-US-2033881

PATIENT
  Age: 53 Year
  Sex: Male
  Weight: 86.18 kg

DRUGS (4)
  1. AJOVY [Suspect]
     Active Substance: FREMANEZUMAB-VFRM
     Indication: Migraine
     Dosage: STRENGTH: 225 MG / 1.5 ML
     Route: 065
     Dates: start: 202202
  2. AJOVY [Suspect]
     Active Substance: FREMANEZUMAB-VFRM
     Route: 065
  3. FIORINAL WITH CODEINE [Concomitant]
     Active Substance: ASPIRIN\BUTALBITAL\CAFFEINE\CODEINE PHOSPHATE
     Indication: Migraine
  4. MigreLief vitamins [Concomitant]
     Indication: Product used for unknown indication
     Dates: end: 202204

REACTIONS (7)
  - Therapeutic product effect delayed [Unknown]
  - Injection site extravasation [Unknown]
  - Incorrect dose administered [Unknown]
  - Inappropriate schedule of product administration [Unknown]
  - Memory impairment [Unknown]
  - Injection site pain [Unknown]
  - Sensitivity to weather change [Unknown]

NARRATIVE: CASE EVENT DATE: 20220401
